FAERS Safety Report 4451867-2 (Version None)
Quarter: 2004Q3

REPORT INFORMATION
  Report Type: 
  Country: None (occurrence: None)
  Receive Date: 20040916
  Receipt Date: 20040903
  Transmission Date: 20050211
  Serious: Yes (Other)
  Sender: FDA-Public Use
  Company Number: 2004063897

PATIENT
  Age: 58 Year
  Sex: Male

DRUGS (1)
  1. LISTERINE(EUCALYPTOL, MENTHOL, METHYL SALICYLATE,THYMOL) [Suspect]
     Indication: DENTAL CARE
     Dosage: ORAL TOPICAL
     Route: 048

REACTIONS (5)
  - DERMATITIS BULLOUS [None]
  - FACE OEDEMA [None]
  - MEDICATION ERROR [None]
  - ORAL DISCOMFORT [None]
  - PARAESTHESIA ORAL [None]
